FAERS Safety Report 20553218 (Version 1)
Quarter: 2022Q1

REPORT INFORMATION
  Report Type: Report from Study
  Country: US (occurrence: US)
  Receive Date: 20220304
  Receipt Date: 20220304
  Transmission Date: 20220423
  Serious: Yes (Other)
  Sender: FDA-Public Use
  Company Number: US-NOVARTISPH-NVSC2022US046587

PATIENT
  Sex: Male

DRUGS (2)
  1. ENTRESTO [Suspect]
     Active Substance: SACUBITRIL\VALSARTAN
     Indication: Cardiac failure
     Dosage: 1 DOSAGE FORM, BID (200MG)
     Route: 048
     Dates: start: 201712
  2. ENSURE [Concomitant]
     Active Substance: AMINO ACIDS\DEXTROSE\ELECTROLYTES NOS\SOYBEAN OIL\VITAMINS
     Indication: Product used for unknown indication
     Dosage: UNK
     Route: 065

REACTIONS (20)
  - Diabetes mellitus [Unknown]
  - Loss of consciousness [Unknown]
  - Ejection fraction decreased [Unknown]
  - Pleural effusion [Unknown]
  - Decreased appetite [Unknown]
  - Influenza like illness [Unknown]
  - Pyrexia [Unknown]
  - Chills [Unknown]
  - Anosmia [Unknown]
  - Fear [Unknown]
  - Weight decreased [Unknown]
  - Gait disturbance [Unknown]
  - Memory impairment [Unknown]
  - Depression [Unknown]
  - Breast tenderness [Unknown]
  - Pollakiuria [Unknown]
  - Dyspnoea [Unknown]
  - Cough [Unknown]
  - Blood pressure decreased [Recovering/Resolving]
  - Product dose omission issue [Unknown]
